FAERS Safety Report 9343190 (Version 1)
Quarter: 2013Q2

REPORT INFORMATION
  Report Type: Spontaneous
  Country: US (occurrence: US)
  Receive Date: 20130611
  Receipt Date: 20130611
  Transmission Date: 20140414
  Serious: No
  Sender: FDA-Public Use
  Company Number: US-PFIZER INC-2013171404

PATIENT
  Age: 65 Year
  Sex: Male

DRUGS (1)
  1. XALATAN [Suspect]
     Dosage: UNK

REACTIONS (3)
  - Drug hypersensitivity [Unknown]
  - Swelling [Unknown]
  - Irritability [Unknown]
